FAERS Safety Report 16711647 (Version 1)
Quarter: 2019Q3

REPORT INFORMATION
  Report Type: Spontaneous
  Country: US (occurrence: US)
  Receive Date: 20190816
  Receipt Date: 20190816
  Transmission Date: 20191004
  Serious: No
  Sender: FDA-Public Use
  Company Number: US-SA-2019SA221675

PATIENT
  Age: 45 Year
  Sex: Female

DRUGS (2)
  1. SOLIQUA 100/33 [Suspect]
     Active Substance: INSULIN GLARGINE\LIXISENATIDE
     Dosage: UNK UNK, UNK
     Route: 065
  2. JANUVIA [Concomitant]
     Active Substance: SITAGLIPTIN PHOSPHATE
     Dosage: UNK UNK, UNK
     Route: 065

REACTIONS (1)
  - Headache [Not Recovered/Not Resolved]
